FAERS Safety Report 6151989-4 (Version None)
Quarter: 2009Q2

REPORT INFORMATION
  Report Type: 
  Country: None (occurrence: None)
  Receive Date: 20090410
  Receipt Date: 20090407
  Transmission Date: 20091009
  Serious: Yes (Hospitalization)
  Sender: FDA-Public Use
  Company Number: DE-ROXANE LABORATORIES, INC.-2009-RO-00351RO

PATIENT
  Sex: Male
  Weight: 1.6 kg

DRUGS (9)
  1. COCAINE [Suspect]
     Indication: DRUG EXPOSURE DURING PREGNANCY
     Route: 064
  2. DIAZEPAM [Suspect]
     Indication: DRUG EXPOSURE DURING PREGNANCY
     Route: 064
  3. METHADONE HCL [Suspect]
     Indication: DRUG EXPOSURE DURING PREGNANCY
     Route: 064
  4. MORPHINE [Suspect]
     Indication: WITHDRAWAL SYNDROME
  5. HEROIN [Suspect]
     Indication: DRUG EXPOSURE DURING PREGNANCY
     Route: 064
  6. NICOTINE [Suspect]
     Indication: DRUG EXPOSURE DURING PREGNANCY
     Route: 064
  7. DIAMORPHINE [Suspect]
     Indication: DRUG EXPOSURE DURING PREGNANCY
     Route: 064
  8. NALOXONE [Suspect]
     Dosage: 1.5MG
     Route: 042
  9. PHENOBARBITAL [Suspect]
     Indication: WITHDRAWAL SYNDROME
     Dosage: 30MG

REACTIONS (5)
  - DRUG WITHDRAWAL SYNDROME NEONATAL [None]
  - HYPERBILIRUBINAEMIA [None]
  - HYPOCALCAEMIA [None]
  - INGUINAL HERNIA [None]
  - NEONATAL RESPIRATORY DISTRESS SYNDROME [None]
